FAERS Safety Report 10298054 (Version 1)
Quarter: 2014Q3

REPORT INFORMATION
  Report Type: Spontaneous
  Country: US (occurrence: US)
  Receive Date: 20140711
  Receipt Date: 20140711
  Transmission Date: 20150326
  Serious: No
  Sender: FDA-Public Use
  Company Number: US-GLAXOSMITHKLINE-A1036141A

PATIENT
  Age: 74 Year
  Sex: Female

DRUGS (9)
  1. FLOVENT [Suspect]
     Active Substance: FLUTICASONE PROPIONATE
     Indication: EMPHYSEMA
     Dosage: 1PUFF TWICE PER DAY
     Route: 055
  2. FENOFIBRATE. [Concomitant]
     Active Substance: FENOFIBRATE
  3. OMEPRAZOLE. [Concomitant]
     Active Substance: OMEPRAZOLE
  4. COUMADIN [Concomitant]
     Active Substance: WARFARIN SODIUM
  5. DIOVAN [Concomitant]
     Active Substance: VALSARTAN
  6. NEXIUM [Concomitant]
     Active Substance: ESOMEPRAZOLE MAGNESIUM
  7. CLONIDINE. [Concomitant]
     Active Substance: CLONIDINE
  8. CARTIA XT [Concomitant]
     Active Substance: DILTIAZEM HYDROCHLORIDE
  9. SYNTHROID [Concomitant]
     Active Substance: LEVOTHYROXINE SODIUM

REACTIONS (5)
  - Oropharyngeal pain [Unknown]
  - Off label use [Unknown]
  - Oral candidiasis [Unknown]
  - Choking sensation [Unknown]
  - Oral disorder [Unknown]

NARRATIVE: CASE EVENT DATE: 20130731
